FAERS Safety Report 9746354 (Version 1)
Quarter: 2013Q4

REPORT INFORMATION
  Report Type: Spontaneous
  Country: AU (occurrence: AU)
  Receive Date: 20131211
  Receipt Date: 20131211
  Transmission Date: 20140711
  Serious: Yes (Hospitalization, Other)
  Sender: FDA-Public Use
  Company Number: AU-BRISTOL-MYERS SQUIBB COMPANY-19892744

PATIENT
  Age: 60 Year
  Sex: 0

DRUGS (3)
  1. ATAZANAVIR [Suspect]
     Indication: HIV INFECTION
     Route: 048
     Dates: start: 200708, end: 20121130
  2. RITONAVIR [Suspect]
     Indication: HIV INFECTION
     Route: 048
     Dates: start: 200708, end: 201211
  3. KIVEXA [Suspect]
     Indication: HIV INFECTION
     Route: 048
     Dates: start: 200708, end: 201211

REACTIONS (4)
  - Hodgkin^s disease [Unknown]
  - Anaemia [Unknown]
  - Hydronephrosis [Unknown]
  - Nephrolithiasis [Recovered/Resolved]
